FAERS Safety Report 5530469-0 (Version None)
Quarter: 2007Q4

REPORT INFORMATION
  Report Type: 
  Country: None (occurrence: None)
  Receive Date: 20071130
  Receipt Date: 20071123
  Transmission Date: 20080405
  Serious: Yes (Hospitalization)
  Sender: FDA-Public Use
  Company Number: AR-BRISTOL-MYERS SQUIBB COMPANY-13892468

PATIENT
  Age: 55 Year
  Sex: Female

DRUGS (7)
  1. ABATACEPT [Suspect]
     Indication: RHEUMATOID ARTHRITIS
     Dosage: SUSPECT PRODUCT NO OF DOSAGE INFO NOT CLEAR.
     Route: 042
     Dates: start: 20040407, end: 20070730
  2. METHOTREXATE [Suspect]
     Indication: RHEUMATOID ARTHRITIS
     Route: 058
     Dates: start: 20040403
  3. ENALAPRIL [Concomitant]
     Dates: start: 20021001
  4. PREDNISONE TAB [Concomitant]
     Dates: start: 20021018
  5. INDOMETHACIN [Concomitant]
     Dates: start: 20021018
  6. FOLIC ACID [Concomitant]
     Dates: start: 19980626
  7. LEVOTHYROXINE SODIUM [Concomitant]
     Dates: start: 19730101

REACTIONS (1)
  - CELLULITIS [None]
